FAERS Safety Report 4505154-4 (Version None)
Quarter: 2004Q4

REPORT INFORMATION
  Report Type: 
  Country: None (occurrence: None)
  Receive Date: 20041019
  Receipt Date: 20040713
  Transmission Date: 20050328
  Serious: Yes (Hospitalization)
  Sender: FDA-Public Use
  Company Number: M2004.0868

PATIENT
  Age: 72 Year
  Sex: Male
  Weight: 72.5755 kg

DRUGS (4)
  1. LISINOPRIL [Suspect]
     Indication: HYPERTENSION
     Dosage: 1 TABLET TWICE A DAY, ORAL
     Route: 048
  2. CARDURA [Concomitant]
  3. ISOSORBIDE MONONITRATE [Concomitant]
  4. NORVASC [Concomitant]

REACTIONS (4)
  - COUGH [None]
  - DIARRHOEA [None]
  - DYSPNOEA [None]
  - MUSCLE CRAMP [None]
